FAERS Safety Report 10779900 (Version 2)
Quarter: 2015Q1

REPORT INFORMATION
  Report Type: Spontaneous
  Country: FR (occurrence: FR)
  Receive Date: 20150210
  Receipt Date: 20150319
  Transmission Date: 20150721
  Serious: Yes (Death)
  Sender: FDA-Public Use
  Company Number: FR-PFIZER INC-2015002385

PATIENT
  Age: 58 Year
  Sex: Male
  Weight: 62 kg

DRUGS (1)
  1. XALKORI [Suspect]
     Active Substance: CRIZOTINIB
     Indication: LUNG ADENOCARCINOMA METASTATIC
     Dosage: 250 MG, 2X/DAY
     Route: 048
     Dates: start: 20150107

REACTIONS (3)
  - Pulmonary embolism [Fatal]
  - Dysphagia [Unknown]
  - Acute respiratory distress syndrome [Fatal]
